FAERS Safety Report 24634147 (Version 2)
Quarter: 2024Q4

REPORT INFORMATION
  Report Type: Report from Study
  Country: US (occurrence: US)
  Receive Date: 20241119
  Receipt Date: 20241127
  Transmission Date: 20250115
  Serious: No
  Sender: AMGEN
  Company Number: US-AMGEN-USASL2024222274

PATIENT
  Age: 66 Year
  Sex: Female
  Weight: 48.526 kg

DRUGS (2)
  1. NEULASTA [Suspect]
     Active Substance: PEGFILGRASTIM
     Indication: Neutropenia
     Dosage: UNK, PER CHEMO REGIM (PER CHEMOTHERAPY)
     Route: 065
     Dates: start: 202408
  2. NEULASTA [Suspect]
     Active Substance: PEGFILGRASTIM
     Indication: Prophylaxis

REACTIONS (3)
  - Injection site discolouration [Unknown]
  - Injection site pain [Unknown]
  - Device delivery system issue [Unknown]

NARRATIVE: CASE EVENT DATE: 20241108
